FAERS Safety Report 8303643-8 (Version None)
Quarter: 2012Q2

REPORT INFORMATION
  Report Type: 
  Country: None (occurrence: None)
  Receive Date: 20120423
  Receipt Date: 20120417
  Transmission Date: 20120825
  Serious: Yes (Hospitalization)
  Sender: FDA-Public Use
  Company Number: US-PFIZER INC-2012001421

PATIENT
  Sex: Female
  Weight: 69 kg

DRUGS (16)
  1. LEVAQUIN [Concomitant]
     Dosage: 300 MG EVERY 12 HOURS
     Route: 048
  2. PLACEBO [Suspect]
     Indication: OSTEOPENIA
     Dosage: UNK
     Route: 042
     Dates: start: 20111010, end: 20111010
  3. FLAGYL [Suspect]
     Indication: COLITIS
     Dosage: 500 MG, 2X/DAY
     Route: 048
     Dates: start: 20111216, end: 20111222
  4. ACETAMINOPHEN [Concomitant]
     Indication: PAIN
     Dosage: 600 MG, AS NEEDED
     Route: 048
     Dates: start: 20080101
  5. LISINOPRIL [Concomitant]
     Indication: HYPERTENSION
     Dosage: 20 MG, 1X/DAY
     Route: 048
     Dates: start: 20090101
  6. VANCOMYCIN [Concomitant]
     Dosage: 250 MG, 4X/DAY
     Route: 048
  7. BLINDED NO SUBJECT DRUG [Suspect]
     Indication: OSTEOPENIA
     Dosage: UNK
     Route: 042
     Dates: start: 20111010, end: 20111010
  8. FLAGYL [Concomitant]
     Dosage: 500 MG, EVERY 8 HOURS
     Route: 048
  9. OMNICEF [Suspect]
     Dosage: 300 MG, 2X/DAY
     Route: 048
     Dates: start: 20111216, end: 20111225
  10. VOLTAREN [Concomitant]
     Indication: PAIN
     Dosage: 1%, PRN, GEL
     Route: 061
     Dates: start: 20090101
  11. PROAIR HFA [Concomitant]
     Dosage: 1 PUFF, BID, PRN
     Route: 048
  12. BLINDED PF-04840082 [Suspect]
     Indication: OSTEOPENIA
     Dosage: UNK
     Route: 042
     Dates: start: 20111010, end: 20111010
  13. ROCEPHIN [Suspect]
     Dosage: 1 MG, UNK
     Route: 042
     Dates: start: 20111216, end: 20111216
  14. BENICAR [Concomitant]
     Indication: HYPERTENSION
     Dosage: 40 MG, 1X/DAY
     Route: 048
     Dates: start: 20111031
  15. TEMAZEPAM [Concomitant]
     Indication: INSOMNIA
     Dosage: 30 MG, 3X/DAY
     Route: 048
     Dates: start: 20080101
  16. ATENOLOL [Concomitant]
     Indication: HYPERTENSION
     Dosage: 25 MG, 1X/DAY
     Route: 048
     Dates: start: 20090701

REACTIONS (1)
  - CLOSTRIDIUM DIFFICILE COLITIS [None]
